FAERS Safety Report 11208128 (Version 1)
Quarter: 2015Q2

REPORT INFORMATION
  Report Type: Spontaneous
  Country: CZ (occurrence: CZ)
  Receive Date: 20150622
  Receipt Date: 20150622
  Transmission Date: 20150821
  Serious: Yes (Death, Hospitalization, Other)
  Sender: FDA-Public Use
  Company Number: PHHY2015CZ074185

PATIENT
  Age: 35 Year
  Sex: Male

DRUGS (1)
  1. PARACETAMOL [Suspect]
     Active Substance: ACETAMINOPHEN
     Indication: TOOTHACHE
     Dosage: 8 G, QD
     Route: 065

REACTIONS (6)
  - Multi-organ failure [Fatal]
  - Metabolic acidosis [Unknown]
  - Medication error [None]
  - Intentional overdose [None]
  - Jaundice [Unknown]
  - Hepatorenal failure [Unknown]
